FAERS Safety Report 19451486 (Version 2)
Quarter: 2021Q3

REPORT INFORMATION
  Report Type: Report from Study
  Country: US (occurrence: US)
  Receive Date: 20210623
  Receipt Date: 20210930
  Transmission Date: 20211014
  Serious: Yes (Hospitalization, Other)
  Sender: FDA-Public Use
  Company Number: US-ACADIA PHARMACEUTICALS INC.-ACA-2021-PIM-002212

PATIENT
  Age: 70 Year
  Sex: Male

DRUGS (3)
  1. NUPLAZID [Suspect]
     Active Substance: PIMAVANSERIN TARTRATE
     Dosage: 30 MILLIGRAM, QD
     Route: 048
     Dates: start: 20210518
  2. NUPLAZID [Suspect]
     Active Substance: PIMAVANSERIN TARTRATE
     Indication: PARKINSON^S DISEASE
     Dosage: 34 MILLIGRAM, QD
     Route: 048
  3. NUPLAZID [Suspect]
     Active Substance: PIMAVANSERIN TARTRATE
     Indication: PARKINSON^S DISEASE
     Dosage: 10 MILLIGRAM, QD
     Route: 048
     Dates: start: 20201003

REACTIONS (7)
  - Hallucination [Unknown]
  - Fall [Recovered/Resolved]
  - Nephrolithiasis [Unknown]
  - Underdose [Not Recovered/Not Resolved]
  - Urinary tract infection [Unknown]
  - Kidney infection [Unknown]
  - Balance disorder [Recovered/Resolved]

NARRATIVE: CASE EVENT DATE: 20200921
